FAERS Safety Report 5502129-3 (Version None)
Quarter: 2007Q4

REPORT INFORMATION
  Report Type: 
  Country: None (occurrence: None)
  Receive Date: 20071030
  Receipt Date: 20071019
  Transmission Date: 20080405
  Serious: Yes (Hospitalization)
  Sender: FDA-Public Use
  Company Number: US-JNJFOC-20071005829

PATIENT
  Sex: Female
  Weight: 52.16 kg

DRUGS (15)
  1. DURAGESIC-100 [Suspect]
     Route: 062
  2. DURAGESIC-100 [Suspect]
     Route: 062
  3. DURAGESIC-100 [Suspect]
     Indication: COMPLEX REGIONAL PAIN SYNDROME
     Dosage: ONE 100UG/HR AND ONE 50UG/HR PATCH
     Route: 062
  4. NEURONTIN [Concomitant]
     Indication: CONVULSION
     Dosage: AT NIGHT
     Route: 048
  5. CELEBREX [Concomitant]
     Indication: SYSTEMIC LUPUS ERYTHEMATOSUS
     Route: 048
  6. LEVOXYL [Concomitant]
     Indication: HYPOTHYROIDISM
     Route: 048
  7. UNSPECIFIED BLOOD PRESSURE MEDICATION [Concomitant]
     Indication: BLOOD PRESSURE
     Route: 048
  8. TOPROL-XL [Concomitant]
     Indication: BLOOD PRESSURE
     Route: 048
  9. HYDROCHLOROTHIAZIDE [Concomitant]
     Indication: BLOOD PRESSURE
     Route: 048
  10. POTASSIUM CHLORIDE [Concomitant]
     Indication: BLOOD PRESSURE
     Route: 048
  11. PLAQUERIL [Concomitant]
     Dosage: IN THE MORNING
     Route: 048
  12. PLAQUERIL [Concomitant]
     Indication: SYSTEMIC LUPUS ERYTHEMATOSUS
     Dosage: AT BEDTIME
     Route: 048
  13. PRILOSEC [Concomitant]
     Indication: GASTROOESOPHAGEAL REFLUX DISEASE
     Route: 048
  14. COLACE [Concomitant]
     Indication: CONSTIPATION
     Route: 048
  15. AMBIEN [Concomitant]
     Indication: INSOMNIA
     Dosage: AT BEDTIME
     Route: 048

REACTIONS (19)
  - ANAEMIA [None]
  - ANXIETY [None]
  - ASTHENIA [None]
  - BURNING SENSATION [None]
  - DEHYDRATION [None]
  - DIARRHOEA [None]
  - DRUG ADMINISTERED AT INAPPROPRIATE SITE [None]
  - DYSGEUSIA [None]
  - HYPERHIDROSIS [None]
  - HYPOAESTHESIA ORAL [None]
  - MALNUTRITION [None]
  - NAUSEA [None]
  - PAIN [None]
  - PALPITATIONS [None]
  - PARAESTHESIA ORAL [None]
  - SOMNOLENCE [None]
  - VITAMIN B12 DEFICIENCY [None]
  - VOMITING [None]
  - WEIGHT DECREASED [None]
